FAERS Safety Report 4697156-2 (Version None)
Quarter: 2005Q2

REPORT INFORMATION
  Report Type: 
  Country: None (occurrence: None)
  Receive Date: 20050622
  Receipt Date: 20050616
  Transmission Date: 20051028
  Serious: Yes (Hospitalization, Other)
  Sender: FDA-Public Use
  Company Number: PHNU2005DE02293

PATIENT
  Age: 67 Year
  Sex: Male

DRUGS (3)
  1. LAMISIL [Suspect]
     Indication: ONYCHOMYCOSIS
     Route: 048
     Dates: end: 20040901
  2. MARCUMAR [Concomitant]
  3. SORTIS [Concomitant]

REACTIONS (3)
  - DERMATITIS EXFOLIATIVE [None]
  - MENTAL DISORDER [None]
  - OSTEOPOROSIS [None]
